FAERS Safety Report 9106311 (Version 1)
Quarter: 2013Q1

REPORT INFORMATION
  Report Type: Other
  Country: PL (occurrence: PL)
  Receive Date: 20130221
  Receipt Date: 20130221
  Transmission Date: 20140127
  Serious: Yes (Other)
  Sender: FDA-Public Use
  Company Number: PL-WATSON-2013-02702

PATIENT
  Age: 63 Year
  Sex: Female

DRUGS (1)
  1. CARBOPLATIN [Suspect]
     Indication: PRODUCT USED FOR UNKNOWN INDICATION
     Dosage: 550 MG, UNKNOWN
     Route: 042
     Dates: start: 20120723

REACTIONS (4)
  - Dyspnoea [Unknown]
  - Hypersensitivity [Unknown]
  - Nausea [Unknown]
  - Erythema [Unknown]
